FAERS Safety Report 7046836-2 (Version None)
Quarter: 2010Q4

REPORT INFORMATION
  Report Type: 
  Country: None (occurrence: None)
  Receive Date: 20101007
  Receipt Date: 20100924
  Transmission Date: 20110411
  Serious: Yes (Other)
  Sender: FDA-Public Use
  Company Number: 20100021USST

PATIENT
  Age: 53 Year
  Sex: Male

DRUGS (4)
  1. PROCARBAZINE HYDROCHLORIDE [Suspect]
     Indication: HODGKIN'S DISEASE
     Dates: end: 19860101
  2. MECHLORETHAMINE [Suspect]
     Indication: HODGKIN'S DISEASE
     Dates: end: 19860101
  3. VINCRISTINE [Suspect]
     Indication: HODGKIN'S DISEASE
     Dates: end: 19860101
  4. PREDNISOLONE [Suspect]
     Indication: HODGKIN'S DISEASE
     Dates: end: 19860101

REACTIONS (1)
  - ANGIOLIPOMA [None]
